FAERS Safety Report 23922479 (Version 2)
Quarter: 2024Q2

REPORT INFORMATION
  Report Type: Spontaneous
  Country: US (occurrence: US)
  Receive Date: 20240531
  Receipt Date: 20240531
  Transmission Date: 20240716
  Serious: No
  Sender: FDA-Public Use
  Company Number: US-JNJFOC-20240513617

PATIENT
  Age: 73 Year
  Sex: Female

DRUGS (4)
  1. IMODIUM [Suspect]
     Active Substance: LOPERAMIDE HYDROCHLORIDE
     Indication: Diarrhoea
     Route: 065
     Dates: start: 2024
  2. TREPROSTINIL DIOLAMINE [Concomitant]
     Active Substance: TREPROSTINIL DIOLAMINE
     Indication: Pulmonary arterial hypertension
     Dosage: SUPPLIED WITH ORENITRAM 2.5 MG, 1 MG AND 0.25 MG AND THE CURRENT DOSE WAS REPORTED AS 4 MG (1 TABLET
     Route: 048
     Dates: start: 202402
  3. OFEV [Concomitant]
     Active Substance: NINTEDANIB
     Indication: Product used for unknown indication
     Route: 065
  4. ORENITRAM [Concomitant]
     Active Substance: TREPROSTINIL
     Indication: Pulmonary arterial hypertension
     Dosage: 2.5 MG, 1 MG AND 0.25 MG
     Route: 048

REACTIONS (1)
  - Therapeutic product effect variable [Unknown]
